FAERS Safety Report 6315548-2 (Version None)
Quarter: 2009Q3

REPORT INFORMATION
  Report Type: 
  Country: None (occurrence: None)
  Receive Date: 20090818
  Receipt Date: 20090806
  Transmission Date: 20100115
  Serious: Yes (Hospitalization)
  Sender: FDA-Public Use
  Company Number: 351077

PATIENT
  Age: 7 Year
  Sex: Female
  Weight: 20 kg

DRUGS (2)
  1. METHOTREXATE [Suspect]
  2. (METHYLPREDNISOLONE) [Concomitant]

REACTIONS (3)
  - CONDITION AGGRAVATED [None]
  - DISEASE PROGRESSION [None]
  - POLYARTHRITIS [None]
